FAERS Safety Report 17732762 (Version 1)
Quarter: 2020Q2

REPORT INFORMATION
  Report Type: Spontaneous
  Country: AU (occurrence: AU)
  Receive Date: 20200501
  Receipt Date: 20200501
  Transmission Date: 20200714
  Serious: Yes (Other)
  Sender: FDA-Public Use
  Company Number: NVSC2020AU118089

PATIENT
  Sex: Male

DRUGS (1)
  1. TRANSIDERM NITRO [Suspect]
     Active Substance: NITROGLYCERIN
     Indication: PRODUCT USED FOR UNKNOWN INDICATION
     Dosage: PATCHES
     Route: 065

REACTIONS (2)
  - Angina pectoris [Unknown]
  - Product adhesion issue [Unknown]
